FAERS Safety Report 8815475 (Version 1)
Quarter: 2012Q4

REPORT INFORMATION
  Report Type: 
  Country: CA (occurrence: CA)
  Receive Date: 20120928
  Receipt Date: 20120928
  Transmission Date: 20130627
  Serious: Yes (Other)
  Sender: FDA-Public Use
  Company Number: CA-GLAXOSMITHKLINE-A0993745A

PATIENT
  Age: 34 Year
  Sex: Female
  Weight: 81.8 kg

DRUGS (5)
  1. STIEVAMYCIN [Suspect]
     Indication: ACNE
     Route: 061
     Dates: start: 20120424, end: 20120913
  2. WELLBUTRIN [Suspect]
     Dosage: 300MG Per day
     Dates: start: 201009
  3. CLINDOXYL [Suspect]
     Indication: PRODUCT USED FOR UNKNOWN INDICATION
     Route: 061
     Dates: start: 20120424
  4. CYMBALTA [Suspect]
     Indication: PRODUCT USED FOR UNKNOWN INDICATION
     Dosage: 30MG Unknown
     Dates: start: 20120428
  5. QUETIAPINE [Suspect]
     Indication: PRODUCT USED FOR UNKNOWN INDICATION
     Dosage: 100MG Per day
     Dates: start: 20110406

REACTIONS (2)
  - Abortion spontaneous [Unknown]
  - Exposure during pregnancy [Unknown]
